FAERS Safety Report 23407508 (Version 1)
Quarter: 2024Q1

REPORT INFORMATION
  Report Type: Report from Study
  Country: US (occurrence: US)
  Receive Date: 20240117
  Receipt Date: 20240117
  Transmission Date: 20240410
  Serious: Yes (Other)
  Sender: FDA-Public Use
  Company Number: US-ABBVIE-5482815

PATIENT
  Sex: Female
  Weight: 63 kg

DRUGS (1)
  1. HUMIRA [Suspect]
     Active Substance: ADALIMUMAB
     Indication: Product used for unknown indication
     Dosage: FORM STRENGTH: 40 MILLIGRAM ?CITRATE FREE
     Route: 058
     Dates: start: 20221103

REACTIONS (4)
  - Loss of consciousness [Recovered/Resolved]
  - Blood iron decreased [Recovering/Resolving]
  - Nausea [Unknown]
  - Dizziness [Recovering/Resolving]
